FAERS Safety Report 7419784-3 (Version None)
Quarter: 2011Q2

REPORT INFORMATION
  Report Type: 
  Country: None (occurrence: None)
  Receive Date: 20110413
  Receipt Date: 20110413
  Transmission Date: 20111010
  Serious: Yes (Other)
  Sender: FDA-Public Use
  Company Number: None

PATIENT
  Age: 16 Year
  Sex: Male
  Weight: 54.4316 kg

DRUGS (1)
  1. INTUNIV [Suspect]
     Indication: ATTENTION DEFICIT/HYPERACTIVITY DISORDER
     Dosage: 4MG DAILY PO
     Route: 048
     Dates: start: 20110408, end: 20110411

REACTIONS (6)
  - INSOMNIA [None]
  - PALLOR [None]
  - CONSTIPATION [None]
  - FATIGUE [None]
  - DIZZINESS [None]
  - ABDOMINAL PAIN UPPER [None]
